FAERS Safety Report 21606029 (Version 6)
Quarter: 2023Q1

REPORT INFORMATION
  Report Type: Spontaneous
  Country: US (occurrence: US)
  Receive Date: 20221117
  Receipt Date: 20230314
  Transmission Date: 20230418
  Serious: Yes (Hospitalization, Other)
  Sender: FDA-Public Use
  Company Number: US-BRISTOL-MYERS SQUIBB COMPANY-2022-137265

PATIENT
  Age: 66 Year
  Sex: Female

DRUGS (2)
  1. POMALYST [Suspect]
     Active Substance: POMALIDOMIDE
     Indication: Plasma cell myeloma
     Dosage: TAKE 1 WHOLE CAPSULE BY MOUTH WITH WATER AT SAME TIME DAILY ON DAYS 1-21 EACH 28-DAY CYCLE WITH OR W
     Route: 048
     Dates: start: 20220916, end: 20221108
  2. POMALYST [Suspect]
     Active Substance: POMALIDOMIDE
     Route: 048

REACTIONS (7)
  - Pneumonia [Recovered/Resolved]
  - White blood cell count abnormal [Recovered/Resolved]
  - Pain [Not Recovered/Not Resolved]
  - Constipation [Not Recovered/Not Resolved]
  - Drug ineffective [Not Recovered/Not Resolved]
  - Immobile [Not Recovered/Not Resolved]
  - Candida infection [Unknown]
